FAERS Safety Report 10805961 (Version 1)
Quarter: 2015Q1

REPORT INFORMATION
  Report Type: Report from Study
  Country: US (occurrence: US)
  Receive Date: 20150217
  Receipt Date: 20150217
  Transmission Date: 20150721
  Serious: No
  Sender: FDA-Public Use
  Company Number: US-ABBVIE-14K-163-1262762-00

PATIENT
  Age: 63 Year
  Sex: Female

DRUGS (10)
  1. PREDNISONE. [Concomitant]
     Active Substance: PREDNISONE
     Indication: PRODUCT USED FOR UNKNOWN INDICATION
  2. KLOR-CON [Concomitant]
     Active Substance: POTASSIUM CHLORIDE
     Indication: PRODUCT USED FOR UNKNOWN INDICATION
  3. ZETONNA [Concomitant]
     Active Substance: CICLESONIDE
     Indication: HYPERSENSITIVITY
  4. ASTEPRO [Concomitant]
     Active Substance: AZELASTINE HYDROCHLORIDE
     Indication: HYPERSENSITIVITY
  5. HUMIRA [Suspect]
     Active Substance: ADALIMUMAB
     Dates: start: 20140523, end: 20140523
  6. HUMIRA [Suspect]
     Active Substance: ADALIMUMAB
     Dates: start: 20140606
  7. HUMIRA [Suspect]
     Active Substance: ADALIMUMAB
     Indication: COLITIS ULCERATIVE
     Dates: start: 20140509, end: 20140509
  8. CRESTOR [Concomitant]
     Active Substance: ROSUVASTATIN CALCIUM
     Indication: BLOOD CHOLESTEROL
  9. DEMADEX [Concomitant]
     Active Substance: TORSEMIDE
     Indication: PRODUCT USED FOR UNKNOWN INDICATION
  10. PLAVIX [Concomitant]
     Active Substance: CLOPIDOGREL BISULFATE
     Indication: PRODUCT USED FOR UNKNOWN INDICATION

REACTIONS (1)
  - Injection site pain [Not Recovered/Not Resolved]

NARRATIVE: CASE EVENT DATE: 20140509
